FAERS Safety Report 24391309 (Version 3)
Quarter: 2024Q4

REPORT INFORMATION
  Report Type: Spontaneous
  Country: US (occurrence: US)
  Receive Date: 20241003
  Receipt Date: 20241230
  Transmission Date: 20250114
  Serious: No
  Sender: NOVARTIS
  Company Number: US-002147023-NVSC2024US193663

PATIENT
  Sex: Female

DRUGS (1)
  1. COSENTYX [Suspect]
     Active Substance: SECUKINUMAB
     Indication: Product used for unknown indication
     Dosage: 150 MG, QW (X2)
     Route: 065

REACTIONS (5)
  - Injection site pain [Unknown]
  - Injection site haemorrhage [Unknown]
  - Injection site bruising [Unknown]
  - Device malfunction [Unknown]
  - Device leakage [Unknown]
